FAERS Safety Report 9852542 (Version 2)
Quarter: 2014Q1

REPORT INFORMATION
  Report Type: Spontaneous
  Country: US (occurrence: US)
  Receive Date: 20140129
  Receipt Date: 20140214
  Transmission Date: 20141002
  Serious: No
  Sender: FDA-Public Use
  Company Number: US-PFIZER INC-2014024034

PATIENT
  Age: 79 Year
  Sex: Female

DRUGS (12)
  1. SUTENT [Suspect]
     Indication: GASTROINTESTINAL CARCINOMA
     Dosage: 37.5 MG, 1X/DAY
     Dates: start: 20131229
  2. SUTENT [Suspect]
     Dosage: 12.5 MG, UNK
     Dates: start: 20140103
  3. SUTENT [Suspect]
     Dosage: 25 MG, UNK
  4. SUTENT [Suspect]
     Dosage: UNK
     Dates: end: 20140131
  5. AMLODIPINE BESILATE/BENAZEPRIL HYDROCHLORIDE [Concomitant]
     Dosage: UNK
  6. ONDANSETRON HYDROCHLORIDE [Concomitant]
     Dosage: UNK
  7. DIAZEPAM [Concomitant]
     Dosage: UNK
  8. POTASSIUM CHLORIDE [Concomitant]
     Dosage: UNK
  9. ISOSORBIDE MONONITRATE [Concomitant]
     Dosage: UNK
  10. LASIX [Concomitant]
     Dosage: UNK
  11. METOPROLOL TARTRATE [Concomitant]
     Dosage: UNK
  12. NEXIUM [Concomitant]
     Dosage: UNK

REACTIONS (5)
  - Fatigue [Unknown]
  - Diarrhoea [Recovered/Resolved]
  - Weight decreased [Recovering/Resolving]
  - Decreased appetite [Recovering/Resolving]
  - Asthenia [Recovering/Resolving]
